FAERS Safety Report 8900638 (Version 2)
Quarter: 2014Q2

REPORT INFORMATION
  Report Type: Spontaneous
  Country: US (occurrence: US)
  Receive Date: 20121109
  Receipt Date: 20130810
  Transmission Date: 20141212
  Serious: Yes (Other)
  Sender: FDA-Public Use
  Company Number: US-BAXTER-2012BAX023395

PATIENT
  Sex: Male
  Weight: 97.73 kg

DRUGS (9)
  1. ARALAST NP [Suspect]
     Indication: ALPHA-1 ANTI-TRYPSIN DEFICIENCY
     Route: 042
  2. CELLCEPT [Suspect]
     Indication: LUNG TRANSPLANT
     Dates: end: 2011
  3. PREDNISONE [Concomitant]
     Indication: PRODUCT USED FOR UNKNOWN INDICATION
  4. FENOFIBRATE [Concomitant]
     Indication: PRODUCT USED FOR UNKNOWN INDICATION
  5. COMBIVENT [Concomitant]
     Indication: PRODUCT USED FOR UNKNOWN INDICATION
  6. ADVAIR [Concomitant]
     Indication: PRODUCT USED FOR UNKNOWN INDICATION
  7. FLUCONAZOLE [Concomitant]
     Indication: INFECTION PROPHYLAXIS
  8. PROGRAF [Concomitant]
     Indication: LUNG TRANSPLANT
  9. PROGRAF [Concomitant]

REACTIONS (1)
  - Skin cancer [Not Recovered/Not Resolved]
